FAERS Safety Report 20960550 (Version 2)
Quarter: 2022Q3

REPORT INFORMATION
  Report Type: Spontaneous
  Country: TR (occurrence: TR)
  Receive Date: 20220615
  Receipt Date: 20220708
  Transmission Date: 20221027
  Serious: Yes (Hospitalization, Other)
  Sender: FDA-Public Use
  Company Number: TR-NOVOPROD-926030

PATIENT
  Sex: Male
  Weight: 2.7 kg

DRUGS (3)
  1. LEVEMIR [Suspect]
     Active Substance: INSULIN DETEMIR
     Indication: Diabetes mellitus
     Dosage: 16 IU, QD
     Route: 064
     Dates: end: 20220411
  2. NOVORAPID [Suspect]
     Active Substance: INSULIN ASPART
     Indication: Diabetes mellitus
     Dosage: 16 IU, QD (6 IU IN THE MORNING, 5 IU IN THE AFTERNOON AND 5 IU AT NIGHT)
     Route: 064
     Dates: end: 20220411
  3. EQUELLE [Concomitant]
     Indication: Hypothyroidism
     Dosage: 1/2 TABLET ONCE A DAY
     Route: 064
     Dates: end: 20220411

REACTIONS (2)
  - Neonatal pneumothorax [Recovered/Resolved]
  - Foetal exposure during pregnancy [Recovered/Resolved]

NARRATIVE: CASE EVENT DATE: 20220411
